FAERS Safety Report 7019543-X (Version None)
Quarter: 2010Q3

REPORT INFORMATION
  Report Type: 
  Country: None (occurrence: None)
  Receive Date: 20100923
  Receipt Date: 20100914
  Transmission Date: 20110219
  Serious: Yes (Hospitalization)
  Sender: FDA-Public Use
  Company Number: 2010US001614

PATIENT
  Age: 55 Week
  Sex: Male
  Weight: 44 kg

DRUGS (4)
  1. TACROLIMUS [Suspect]
     Indication: DERMATITIS ATOPIC
     Dosage: 0.1 %, BID, TOPICAL
     Route: 061
     Dates: start: 20090306
  2. PIMECROLIMUS (PIMECROLIMUS, PIMECROLIMUS) [Concomitant]
  3. ALBUTEROL [Concomitant]
  4. XYZAL (LEVOCETRIZIINE DIHYDROCHLORIDE) [Concomitant]

REACTIONS (10)
  - BRONCHIOLITIS [None]
  - BRONCHITIS [None]
  - FOOD ALLERGY [None]
  - HYPOVOLAEMIA [None]
  - NO THERAPEUTIC RESPONSE [None]
  - OTITIS MEDIA [None]
  - RESPIRATORY DISTRESS [None]
  - TACHYPNOEA [None]
  - TONSILLITIS [None]
  - WHEEZING [None]
